FAERS Safety Report 25173478 (Version 5)
Quarter: 2025Q3

REPORT INFORMATION
  Report Type: Report from Study
  Country: US (occurrence: US)
  Receive Date: 20250408
  Receipt Date: 20250723
  Transmission Date: 20251021
  Serious: Yes (Hospitalization, Other)
  Sender: UCB
  Company Number: US-UCBSA-2025004973

PATIENT
  Sex: Male
  Weight: 73 kg

DRUGS (6)
  1. FINTEPLA [Suspect]
     Active Substance: FENFLURAMINE
     Indication: Lennox-Gastaut syndrome
     Dosage: 3 MILLILITER, 2X/DAY (BID)
     Dates: start: 20230524
  2. FINTEPLA [Suspect]
     Active Substance: FENFLURAMINE
     Indication: Seizure
     Dosage: 3 MILLILITER, 3X/DAY (TID)
  3. FINTEPLA [Suspect]
     Active Substance: FENFLURAMINE
     Dates: start: 20240729
  4. FINTEPLA [Suspect]
     Active Substance: FENFLURAMINE
     Dosage: 3 MILLILITER, 3X/DAY (TID)
  5. FINTEPLA [Suspect]
     Active Substance: FENFLURAMINE
     Dosage: 3 MILLILITER, 3X/DAY (TID)
  6. FINTEPLA [Suspect]
     Active Substance: FENFLURAMINE
     Dosage: 4.5 MILLILITER, 2X/DAY (BID)
     Route: 048

REACTIONS (15)
  - Seizure [Recovered/Resolved]
  - Behaviour disorder [Recovered/Resolved]
  - Diastolic dysfunction [Not Recovered/Not Resolved]
  - Schizophrenia [Not Recovered/Not Resolved]
  - Weight decreased [Unknown]
  - Poor quality sleep [Unknown]
  - Eating disorder [Unknown]
  - Abdominal pain [Unknown]
  - Slow speech [Unknown]
  - Anxiety [Unknown]
  - Abnormal behaviour [Unknown]
  - Psychomotor hyperactivity [Unknown]
  - Agitation [Not Recovered/Not Resolved]
  - Inappropriate schedule of product administration [Unknown]
  - Product dose omission issue [Unknown]

NARRATIVE: CASE EVENT DATE: 20240101
